FAERS Safety Report 5619343-9 (Version None)
Quarter: 2008Q1

REPORT INFORMATION
  Report Type: 
  Country: None (occurrence: None)
  Receive Date: 20080114
  Receipt Date: 20070302
  Transmission Date: 20080703
  Serious: Yes (Other)
  Sender: FDA-Public Use
  Company Number: A03200701863

PATIENT

DRUGS (2)
  1. PLAVIX [Suspect]
     Indication: CORONARY ARTERY BYPASS
     Dosage: 75 MG QD - ORAL
     Route: 048
     Dates: start: 20050101, end: 20070226
  2. ACETYLSALICYLIC ACID SRT [Concomitant]

REACTIONS (2)
  - HEADACHE [None]
  - SUBDURAL HAEMATOMA [None]
